FAERS Safety Report 7541873-3 (Version None)
Quarter: 2011Q2

REPORT INFORMATION
  Report Type: 
  Country: None (occurrence: None)
  Receive Date: 20110613
  Receipt Date: 20110602
  Transmission Date: 20111010
  Serious: Yes (Hospitalization)
  Sender: FDA-Public Use
  Company Number: JP-AMGEN-JPNCT2011006397

PATIENT
  Age: 75 Year
  Sex: Female
  Weight: 53 kg

DRUGS (15)
  1. ANTIHISTAMINES [Concomitant]
     Indication: PROPHYLAXIS
     Dosage: UNK
     Route: 065
  2. FLUOROURACIL [Concomitant]
     Indication: COLORECTAL CANCER
     Route: 040
     Dates: start: 20100817, end: 20101102
  3. FAMOTIDINE [Concomitant]
     Dosage: UNK
     Route: 048
  4. LASIX [Concomitant]
     Route: 048
  5. MIYA-BM [Concomitant]
     Dosage: UNK
     Route: 048
  6. PANITUMUMAB [Suspect]
     Indication: COLORECTAL CANCER
     Dosage: 6 MG/KG, Q2WK
     Route: 041
     Dates: start: 20100817, end: 20100817
  7. PANITUMUMAB [Suspect]
     Dosage: 4 MG/KG, Q2WK
     Route: 041
     Dates: start: 20100907, end: 20101102
  8. CORTICOSTEROIDS [Concomitant]
     Indication: PROPHYLAXIS
     Dosage: UNK
     Route: 065
  9. LENDORMIN [Concomitant]
     Dosage: UNK
     Route: 048
  10. LOPERAMIDE HCL [Concomitant]
     Dosage: UNK
     Route: 048
  11. FLUOROURACIL [Concomitant]
     Route: 041
     Dates: start: 20100817, end: 20101102
  12. DEPAS [Concomitant]
     Dosage: UNK
     Route: 048
  13. IRINOTECAN HCL [Concomitant]
     Indication: COLORECTAL CANCER
     Route: 041
     Dates: start: 20100817, end: 20101102
  14. LEUCOVORIN CALCIUM [Concomitant]
     Indication: COLORECTAL CANCER
     Route: 041
     Dates: start: 20100817, end: 20101102
  15. SENNOSIDE [Concomitant]
     Dosage: UNK
     Route: 048

REACTIONS (3)
  - BLOOD POTASSIUM DECREASED [None]
  - PANCYTOPENIA [None]
  - MALAISE [None]
